FAERS Safety Report 16947257 (Version 1)
Quarter: 2019Q4

REPORT INFORMATION
  Report Type: Spontaneous
  Country: US (occurrence: US)
  Receive Date: 20191022
  Receipt Date: 20191022
  Transmission Date: 20200122
  Serious: No
  Sender: FDA-Public Use
  Company Number: US-BECTON DICKINSON-2019BDN00202

PATIENT

DRUGS (1)
  1. CHLORAPREP WITH TINT [Suspect]
     Active Substance: CHLORHEXIDINE GLUCONATE\ISOPROPYL ALCOHOL
     Indication: INFECTION PROPHYLAXIS
     Dosage: UNK
     Route: 061
     Dates: start: 201904, end: 201904

REACTIONS (5)
  - Application site irritation [Unknown]
  - Application site hypersensitivity [Unknown]
  - Application site erythema [Unknown]
  - Application site rash [Unknown]
  - Application site pruritus [Unknown]

NARRATIVE: CASE EVENT DATE: 201904
